FAERS Safety Report 6414765-0 (Version None)
Quarter: 2009Q4

REPORT INFORMATION
  Report Type: 
  Country: None (occurrence: None)
  Receive Date: 20091026
  Receipt Date: 20091026
  Transmission Date: 20100525
  Serious: Yes (Hospitalization, Other)
  Sender: FDA-Public Use
  Company Number: None

PATIENT
  Sex: Male
  Weight: 74.8435 kg

DRUGS (1)
  1. CIALIS [Suspect]
     Indication: PROSTATECTOMY
     Dosage: 2.5MG 1XDAY PO
     Route: 048
     Dates: start: 20091019, end: 20091019

REACTIONS (8)
  - AMNESIA [None]
  - ANAEMIA [None]
  - CONFUSIONAL STATE [None]
  - FALL [None]
  - GAIT DISTURBANCE [None]
  - HEAD INJURY [None]
  - INCOHERENT [None]
  - OFF LABEL USE [None]
